FAERS Safety Report 5388540-2 (Version None)
Quarter: 2007Q3

REPORT INFORMATION
  Report Type: 
  Country: None (occurrence: None)
  Receive Date: 20070711
  Receipt Date: 20070703
  Transmission Date: 20080115
  Serious: Yes (Other)
  Sender: FDA-Public Use
  Company Number: 2007SP007869

PATIENT
  Age: 41 Year
  Sex: Male

DRUGS (2)
  1. VIRAFERONPEG [Suspect]
     Indication: HEPATITIS C
     Dosage: 100 MG; QW; SC
     Route: 058
     Dates: start: 20070420, end: 20070420
  2. REBETOL [Suspect]
     Indication: HEPATITIS C
     Dosage: 500 MG; BID; PO
     Route: 048
     Dates: start: 20070420

REACTIONS (1)
  - DYSURIA [None]
